FAERS Safety Report 18556547 (Version 60)
Quarter: 2025Q2

REPORT INFORMATION
  Report Type: Report from Study
  Country: US (occurrence: US)
  Receive Date: 20201128
  Receipt Date: 20250603
  Transmission Date: 20250716
  Serious: Yes (Hospitalization, Other)
  Sender: TAKEDA
  Company Number: US-SHIRE-US202017859

PATIENT
  Age: 66 Year
  Sex: Female

DRUGS (6)
  1. HUMAN IMMUNOGLOBULIN G [Suspect]
     Active Substance: HUMAN IMMUNOGLOBULIN G
     Indication: Primary immunodeficiency syndrome
     Dosage: 40 GRAM, MONTHLY
  2. HUMAN IMMUNOGLOBULIN G [Suspect]
     Active Substance: HUMAN IMMUNOGLOBULIN G
     Indication: Immunodeficiency common variable
     Dosage: UNK UNK, MONTHLY
  3. HUMAN IMMUNOGLOBULIN G [Suspect]
     Active Substance: HUMAN IMMUNOGLOBULIN G
  4. GAMMAGARD S/D [Suspect]
     Active Substance: HUMAN IMMUNOGLOBULIN G
     Indication: Primary immunodeficiency syndrome
  5. GAMMAGARD S/D [Suspect]
     Active Substance: HUMAN IMMUNOGLOBULIN G
     Indication: Immunodeficiency common variable
  6. LEVAQUIN [Suspect]
     Active Substance: LEVOFLOXACIN
     Indication: Product used for unknown indication

REACTIONS (120)
  - Pyrexia [Unknown]
  - Pain in jaw [Unknown]
  - Procedural haemorrhage [Unknown]
  - Cellulitis [Unknown]
  - Rheumatoid arthritis [Unknown]
  - Nerve root injury [Unknown]
  - Haematochezia [Unknown]
  - Retinal detachment [Unknown]
  - Illness [Unknown]
  - Arthritis [Unknown]
  - Immunoglobulins decreased [Unknown]
  - Head injury [Unknown]
  - Von Willebrand^s disease [Unknown]
  - Pneumonia [Unknown]
  - Nephrolithiasis [Unknown]
  - Haemorrhagic disorder [Not Recovered/Not Resolved]
  - Pulmonary fibrosis [Unknown]
  - Noninfective encephalitis [Unknown]
  - Myelopathy [Unknown]
  - Pneumonia streptococcal [Unknown]
  - Pneumonia staphylococcal [Unknown]
  - Autoimmune thyroiditis [Unknown]
  - Contusion [Unknown]
  - Hypothyroidism [Unknown]
  - Hypoaesthesia [Unknown]
  - Musculoskeletal stiffness [Unknown]
  - Asthma [Unknown]
  - Pain [Unknown]
  - Cough [Unknown]
  - Spondylitis [Unknown]
  - Nerve injury [Unknown]
  - Wound [Unknown]
  - Vitamin B6 decreased [Unknown]
  - Blood immunoglobulin M decreased [Unknown]
  - Nasal septum deviation [Unknown]
  - Blood iron decreased [Unknown]
  - Epstein-Barr virus infection [Unknown]
  - Nervousness [Unknown]
  - T-lymphocyte count decreased [Unknown]
  - Ear infection [Unknown]
  - Platelet disorder [Unknown]
  - Coagulation factor VIII level decreased [Unknown]
  - Rhinitis [Unknown]
  - Anaesthesia [Unknown]
  - Arthropathy [Unknown]
  - Epistaxis [Unknown]
  - Insomnia [Unknown]
  - Lymphadenopathy [Unknown]
  - Eye pain [Unknown]
  - Back pain [Unknown]
  - Diarrhoea [Unknown]
  - Infusion site pain [Unknown]
  - Bladder hypertrophy [Unknown]
  - Infusion related reaction [Unknown]
  - Dermatitis contact [Unknown]
  - Osteoarthritis [Unknown]
  - Urothelium erosion [Unknown]
  - Spinal stenosis [Unknown]
  - Spinal synovial cyst [Unknown]
  - Tooth fracture [Unknown]
  - Inflammation [Unknown]
  - Vocal cord cyst [Unknown]
  - Muscle strain [Unknown]
  - Localised infection [Unknown]
  - Food poisoning [Unknown]
  - Intervertebral disc protrusion [Unknown]
  - Skin laceration [Unknown]
  - Multiple allergies [Unknown]
  - Infectious mononucleosis [Unknown]
  - Neoplasm skin [Unknown]
  - Hypovitaminosis [Unknown]
  - Limb injury [Unknown]
  - Malabsorption [Unknown]
  - Melanocytic naevus [Unknown]
  - Fungal infection [Unknown]
  - Spinal pain [Unknown]
  - Skin fissures [Unknown]
  - Uterine pain [Unknown]
  - Gastrointestinal disorder [Unknown]
  - Osteoporosis [Unknown]
  - Thyroid mass [Unknown]
  - Poor quality sleep [Unknown]
  - Wound infection [Unknown]
  - Malnutrition [Unknown]
  - Urinary tract infection [Unknown]
  - Post procedural infection [Unknown]
  - Gait disturbance [Unknown]
  - Stress [Unknown]
  - Joint injury [Unknown]
  - Spinal disorder [Unknown]
  - Increased tendency to bruise [Unknown]
  - Renal disorder [Unknown]
  - Musculoskeletal discomfort [Unknown]
  - Cystic fibrosis [Unknown]
  - Productive cough [Unknown]
  - Fall [Unknown]
  - Red blood cell sedimentation rate increased [Unknown]
  - Product dose omission issue [Unknown]
  - Tendon injury [Unknown]
  - Exostosis [Unknown]
  - Bladder mass [Unknown]
  - Crying [Unknown]
  - Carpal tunnel syndrome [Unknown]
  - Neutrophil count increased [Unknown]
  - Sinusitis [Unknown]
  - Upper respiratory tract infection [Unknown]
  - Feeling abnormal [Not Recovered/Not Resolved]
  - Asthenia [Unknown]
  - Anaemia [Unknown]
  - Blood pressure increased [Unknown]
  - Wheezing [Unknown]
  - Arthralgia [Unknown]
  - Muscle spasms [Unknown]
  - Dyspnoea [Unknown]
  - Erythema [Unknown]
  - Tremor [Unknown]
  - Migraine [Unknown]
  - Vomiting [Unknown]
  - Fatigue [Unknown]
  - Headache [Unknown]

NARRATIVE: CASE EVENT DATE: 20240417
